FAERS Safety Report 7759678-7 (Version None)
Quarter: 2011Q3

REPORT INFORMATION
  Report Type: 
  Country: None (occurrence: None)
  Receive Date: 20110915
  Receipt Date: 20110830
  Transmission Date: 20111222
  Serious: Yes (Death, Hospitalization, Other)
  Sender: FDA-Public Use
  Company Number: 2011MA012799

PATIENT
  Age: 15 Year
  Sex: Male

DRUGS (12)
  1. GEMCITABINE HYDROCHLORIDE [Suspect]
     Dosage: 1000 MG/M2/0.5H; IV
     Route: 042
  2. OXALIPLATIN [Suspect]
     Dosage: 85 MG/M2/2H; IV
     Route: 042
  3. ONDANSETRON [Suspect]
     Dosage: 5 MG/M2; IV
     Route: 042
  4. TRIMETHOPRIM [Suspect]
     Indication: PNEUMOCYSTIS JIROVECI PNEUMONIA
     Dosage: 5 MG/KG;BID 3 DAYS/WEEK;
  5. IRINOTECAN HCL [Suspect]
     Dosage: 175 MG/M2/2H; IV
     Route: 042
  6. AMPHOTERICIN B [Suspect]
     Indication: FUNGAL INFECTION
     Dosage: 4 X2 ML/D; PO
     Route: 048
  7. TROPISETRON HYDROCHLORIDE (TROPISETRON HYDROCHLORIDE) [Suspect]
     Indication: PROPHYLAXIS OF NAUSEA AND VOMITING
     Dosage: 2 MG/KG/DOSE;IV
     Route: 042
  8. DIMENHYDRINATE [Suspect]
     Indication: PROPHYLAXIS OF NAUSEA AND VOMITING
     Dosage: 2 MG/KG/DOSE; IV
     Route: 042
  9. LOPERAMIDE [Suspect]
     Indication: CHOLINERGIC SYNDROME
     Dosage: 2 MG; PO
     Route: 048
  10. SODIUM CHLORIDE 0.9% [Suspect]
     Indication: PROPHYLAXIS
     Dosage: .45 % 3L/M2/D;QH;IV
     Route: 042
  11. SULFONAMIDE (NO PREF. NAME) [Suspect]
     Indication: PNEUMOCYSTIS JIROVECI PNEUMONIA
     Dosage: 5 MG/KG; BID 3 DAYS/WEEK;
  12. DEXTROSE 5% [Suspect]
     Indication: PROPHYLAXIS
     Dosage: 5 % 3L/M2/D;QH;IV
     Route: 042

REACTIONS (2)
  - THROMBOCYTOPENIA [None]
  - LEUKOPENIA [None]
